FAERS Safety Report 5524705-4 (Version None)
Quarter: 2007Q4

REPORT INFORMATION
  Report Type: 
  Country: None (occurrence: None)
  Receive Date: 20071123
  Receipt Date: 20071114
  Transmission Date: 20080405
  Serious: Yes (Death, Hospitalization, Other)
  Sender: FDA-Public Use
  Company Number: PHBS2005TR02159

PATIENT
  Age: 7 Year
  Sex: Female

DRUGS (5)
  1. CYCLOSPORINE [Suspect]
     Indication: BONE MARROW TRANSPLANT
     Route: 065
  2. METHOTREXATE [Concomitant]
  3. BUSULFAN [Concomitant]
     Dosage: 16 MG/KG
  4. CYCLOPHOSPHAMIDE [Concomitant]
     Dosage: 200 MG/KG
  5. ATGAM [Concomitant]

REACTIONS (19)
  - ACUTE GRAFT VERSUS HOST DISEASE IN SKIN [None]
  - BLOOD SODIUM DECREASED [None]
  - CEREBRAL ATROPHY [None]
  - ELECTROLYTE IMBALANCE [None]
  - ENCEPHALOPATHY [None]
  - EPISTAXIS [None]
  - FEBRILE NEUTROPENIA [None]
  - FLUID OVERLOAD [None]
  - GRAFT VERSUS HOST DISEASE [None]
  - GRAND MAL CONVULSION [None]
  - HYPERTENSION [None]
  - IMMUNOSUPPRESSANT DRUG LEVEL INCREASED [None]
  - INTUBATION [None]
  - KRABBE'S DISEASE [None]
  - MULTI-ORGAN FAILURE [None]
  - NEUROTOXICITY [None]
  - RASH MACULO-PAPULAR [None]
  - RESPIRATORY ARREST [None]
  - SUBDURAL HAEMATOMA [None]
